FAERS Safety Report 4870740-9 (Version None)
Quarter: 2005Q4

REPORT INFORMATION
  Report Type: 
  Country: None (occurrence: None)
  Receive Date: 20051229
  Receipt Date: 20051215
  Transmission Date: 20060501
  Serious: Yes (Hospitalization)
  Sender: FDA-Public Use
  Company Number: FR200512003213

PATIENT
  Age: 50 Year
  Sex: Female

DRUGS (2)
  1. ZYPREXA [Suspect]
     Indication: PSYCHOTIC DISORDER
     Dosage: 10 MG, DAILY (1/D), ORAL
     Route: 048
     Dates: start: 20020101
  2. GLUCOPHAGE [Concomitant]

REACTIONS (1)
  - MYOCARDIAL INFARCTION [None]
